FAERS Safety Report 9646480 (Version 1)
Quarter: 2013Q4

REPORT INFORMATION
  Report Type: Spontaneous
  Country: FR (occurrence: FR)
  Receive Date: 20131025
  Receipt Date: 20131025
  Transmission Date: 20140711
  Serious: Yes (Hospitalization, Other)
  Sender: FDA-Public Use
  Company Number: FR-ABBVIE-13P-056-1160003-00

PATIENT
  Age: 67 Year
  Sex: Male

DRUGS (1)
  1. HUMIRA [Suspect]
     Indication: RHEUMATOID ARTHRITIS
     Dosage: REGULARLY DISCONTINUED DUE TO SURGERY
     Route: 058
     Dates: start: 2008, end: 201211

REACTIONS (6)
  - Cardiac tamponade [Recovered/Resolved]
  - Pericardial effusion [Recovering/Resolving]
  - Atrial fibrillation [Unknown]
  - Device related infection [Unknown]
  - Sepsis [Unknown]
  - Effusion [Unknown]
